FAERS Safety Report 8334539-3 (Version None)
Quarter: 2012Q2

REPORT INFORMATION
  Report Type: 
  Country: None (occurrence: None)
  Receive Date: 20120503
  Receipt Date: 20120423
  Transmission Date: 20120825
  Serious: Yes (Hospitalization)
  Sender: FDA-Public Use
  Company Number: US-BRISTOL-MYERS SQUIBB COMPANY-16542029

PATIENT
  Age: 64 Year
  Sex: Male

DRUGS (3)
  1. SOLIRIS [Suspect]
     Indication: HAEMOLYTIC URAEMIC SYNDROME
     Dosage: 300MG CONCENTRATE
     Route: 042
     Dates: start: 20120306, end: 20120306
  2. HEPARIN [Suspect]
     Indication: HAEMOLYTIC URAEMIC SYNDROME
  3. COUMADIN [Suspect]
     Indication: HAEMOLYTIC URAEMIC SYNDROME

REACTIONS (5)
  - INTRACARDIAC THROMBUS [None]
  - VENA CAVA THROMBOSIS [None]
  - HAEMOLYTIC URAEMIC SYNDROME [None]
  - EPISTAXIS [None]
  - HAEMOPTYSIS [None]
